FAERS Safety Report 5041518-0 (Version None)
Quarter: 2006Q2

REPORT INFORMATION
  Report Type: 
  Country: None (occurrence: None)
  Receive Date: 20060627
  Receipt Date: 20060614
  Transmission Date: 20061013
  Serious: Yes (Death, Hospitalization)
  Sender: FDA-Public Use
  Company Number: 200612430BWH

PATIENT
  Age: 54 Year
  Sex: Male
  Weight: 74.3899 kg

DRUGS (19)
  1. SORAFENIB [Suspect]
     Indication: METASTATIC MALIGNANT MELANOMA
     Dosage: 200 MG BID ORAL
     Route: 048
     Dates: start: 20060120, end: 20060308
  2. SORAFENIB [Suspect]
     Indication: METASTATIC MALIGNANT MELANOMA
     Dosage: 200 MG BID ORAL
     Route: 048
     Dates: start: 20060526, end: 20060601
  3. PEPCID [Concomitant]
  4. BENADRYL [Concomitant]
  5. DECADRON [Concomitant]
  6. AUGMENTIN '125' [Concomitant]
  7. ACETAMINOPHEN [Concomitant]
  8. MAGNESIUM OXIDE [Concomitant]
  9. RHINOCORT AQUA [Concomitant]
  10. CEFEPIME [Concomitant]
  11. ZOFRAN [Concomitant]
  12. COMPAZINE [Concomitant]
  13. NEURONTIN [Concomitant]
  14. OXYCONTIN [Concomitant]
  15. NEUPOGEN [Concomitant]
  16. PACLITAXEL [Suspect]
     Dosage: SEE IMAGE
     Dates: start: 20060119, end: 20060308
  17. PACLITAXEL [Suspect]
     Dosage: SEE IMAGE
     Dates: start: 20060526, end: 20060601
  18. CARBOPLATIN [Suspect]
     Dosage: SEE IMAGE
     Route: 042
     Dates: start: 20060119, end: 20060307
  19. CARBOPLATIN [Suspect]
     Dosage: SEE IMAGE
     Route: 042
     Dates: start: 20060525

REACTIONS (7)
  - COUGH [None]
  - FEBRILE NEUTROPENIA [None]
  - MYALGIA [None]
  - SINUSITIS [None]
  - SUDDEN DEATH [None]
  - UPPER RESPIRATORY TRACT INFECTION [None]
  - WHITE BLOOD CELL COUNT DECREASED [None]
